FAERS Safety Report 5179477-2 (Version None)
Quarter: 2006Q4

REPORT INFORMATION
  Report Type: 
  Country: None (occurrence: None)
  Receive Date: 20061211
  Receipt Date: 20061128
  Transmission Date: 20070319
  Serious: Yes (Hospitalization)
  Sender: FDA-Public Use
  Company Number: HQWYE392029SEP06

PATIENT
  Age: 72 Year
  Sex: Female

DRUGS (5)
  1. ETODOLAC [Suspect]
     Indication: SPINAL OSTEOARTHRITIS
     Dosage: 400 MG 1X PER 1 DAY, ORAL
     Route: 048
     Dates: start: 20060904, end: 20060912
  2. LEVOTHYROXINE SODIUM [Concomitant]
  3. ALFEROL (ALFACALCIDOL) [Concomitant]
  4. OLMETEC (OLMESARTAN MEDOXOMIL) [Concomitant]
  5. SELBEX (TEPRENONE) [Concomitant]

REACTIONS (5)
  - HAEMATURIA [None]
  - PHARYNGOLARYNGEAL PAIN [None]
  - SKIN TEST POSITIVE [None]
  - STEVENS-JOHNSON SYNDROME [None]
  - TOXIC EPIDERMAL NECROLYSIS [None]
